FAERS Safety Report 18607350 (Version 3)
Quarter: 2021Q1

REPORT INFORMATION
  Report Type: Spontaneous
  Country: US (occurrence: US)
  Receive Date: 20201212
  Receipt Date: 20210211
  Transmission Date: 20210419
  Serious: Yes (Other)
  Sender: FDA-Public Use
  Company Number: US-ROCHE-2694552

PATIENT
  Sex: Female

DRUGS (23)
  1. OMEPRAZOLE. [Concomitant]
     Active Substance: OMEPRAZOLE
  2. CLOTRIMAZOLE. [Concomitant]
     Active Substance: CLOTRIMAZOLE
  3. FERROUS SULFATE. [Concomitant]
     Active Substance: FERROUS SULFATE
  4. ATORVASTATIN CALCIUM. [Concomitant]
     Active Substance: ATORVASTATIN CALCIUM
     Route: 048
  5. OLMESARTAN MEDOXOMIL. [Concomitant]
     Active Substance: OLMESARTAN MEDOXOMIL
  6. ACTEMRA [Suspect]
     Active Substance: TOCILIZUMAB
     Indication: GIANT CELL ARTERITIS
     Dosage: 162 MG/0.9 ML PFS?ONGING?YES
     Route: 058
     Dates: start: 20200713
  7. CEFADROXIL. [Concomitant]
     Active Substance: CEFADROXIL
  8. DICLOFENAC SODIUM. [Concomitant]
     Active Substance: DICLOFENAC SODIUM
  9. METFORMIN HYDROCHLORIDE. [Concomitant]
     Active Substance: METFORMIN HYDROCHLORIDE
  10. PANTOPRAZOLE SODIUM. [Concomitant]
     Active Substance: PANTOPRAZOLE SODIUM
  11. ACTEMRA [Suspect]
     Active Substance: TOCILIZUMAB
     Indication: GIANT CELL ARTERITIS
     Dosage: STRENGTH: 162 MG/0.9 ML?ONGOING: YES. INJECT 1 PEN UNDER THE SKIN EVERY 14 DAYS
     Route: 058
     Dates: start: 20201116
  12. BABY ASPIRIN [Concomitant]
     Active Substance: ASPIRIN
  13. ASPIRIN. [Concomitant]
     Active Substance: ASPIRIN
  14. AZITHROMYCIN ANHYDROUS. [Concomitant]
     Active Substance: AZITHROMYCIN ANHYDROUS
  15. CYANOCOBALAMIN. [Concomitant]
     Active Substance: CYANOCOBALAMIN
  16. VENTOLIN HFA [Concomitant]
     Active Substance: ALBUTEROL SULFATE
  17. GABAPENTIN. [Concomitant]
     Active Substance: GABAPENTIN
  18. LOSARTAN POTASSIUM. [Concomitant]
     Active Substance: LOSARTAN POTASSIUM
  19. SPIRONOLACTONE. [Concomitant]
     Active Substance: SPIRONOLACTONE
  20. NITROFURANTOIN. [Concomitant]
     Active Substance: NITROFURANTOIN
  21. NORTRIPTYLINE HYDROCHLORIDE. [Concomitant]
     Active Substance: NORTRIPTYLINE HYDROCHLORIDE
  22. PREDNISONE. [Concomitant]
     Active Substance: PREDNISONE
  23. METOPROLOL SUCCINATE. [Concomitant]
     Active Substance: METOPROLOL SUCCINATE

REACTIONS (20)
  - Diabetes mellitus [Unknown]
  - Obesity [Unknown]
  - Mental status changes [Unknown]
  - Hypertension [Unknown]
  - Urinary tract infection [Unknown]
  - Back pain [Unknown]
  - Memory impairment [Unknown]
  - Antinuclear antibody increased [Unknown]
  - Hyperlipidaemia [Unknown]
  - Blood iron decreased [Unknown]
  - Oesophagitis [Unknown]
  - Vitamin D deficiency [Unknown]
  - Intermittent claudication [Unknown]
  - Vitamin B12 deficiency [Unknown]
  - Arteriosclerosis coronary artery [Unknown]
  - Transient ischaemic attack [Unknown]
  - Mood swings [Unknown]
  - Anaemia [Unknown]
  - Sleep disorder [Unknown]
  - Headache [Unknown]
